FAERS Safety Report 22645415 (Version 1)
Quarter: 2023Q2

REPORT INFORMATION
  Report Type: Spontaneous
  Country: US (occurrence: US)
  Receive Date: 20230627
  Receipt Date: 20230627
  Transmission Date: 20230722
  Serious: No
  Sender: FDA-Public Use
  Company Number: US-PFIZER INC-202300227585

PATIENT
  Age: 76 Year
  Sex: Female
  Weight: 72.562 kg

DRUGS (2)
  1. PAXLOVID [Suspect]
     Active Substance: NIRMATRELVIR\RITONAVIR
     Indication: COVID-19 treatment
     Dosage: 3 DF (TWO WHITE PILLS AND ONE PINK PILL)
  2. PAXLOVID [Suspect]
     Active Substance: NIRMATRELVIR\RITONAVIR
     Dosage: 3 DF (TWO PINK PILLS AND ONE WHITE PILL)

REACTIONS (2)
  - Dysgeusia [Unknown]
  - Incorrect dose administered [Unknown]
